FAERS Safety Report 5717683-6 (Version None)
Quarter: 2008Q2

REPORT INFORMATION
  Report Type: 
  Country: None (occurrence: None)
  Receive Date: 20080425
  Receipt Date: 20080416
  Transmission Date: 20081010
  Serious: Yes (Hospitalization)
  Sender: FDA-Public Use
  Company Number: FR-ROCHE-559307

PATIENT
  Sex: Male

DRUGS (5)
  1. VALIUM [Suspect]
     Indication: DRUG USE FOR UNKNOWN INDICATION
     Route: 048
     Dates: start: 20080119, end: 20080218
  2. KEPPRA [Suspect]
     Indication: DRUG USE FOR UNKNOWN INDICATION
     Dosage: DRUG: KEPPRA 500
     Route: 048
     Dates: start: 20080122, end: 20080204
  3. IMOVANE [Concomitant]
     Route: 048
     Dates: start: 20080123
  4. ATACAND [Concomitant]
  5. DIAMICRON [Concomitant]

REACTIONS (1)
  - HYPOMANIA [None]
